FAERS Safety Report 25547178 (Version 1)
Quarter: 2025Q3

REPORT INFORMATION
  Report Type: Spontaneous
  Country: RU (occurrence: RU)
  Receive Date: 20250714
  Receipt Date: 20250714
  Transmission Date: 20251020
  Serious: Yes (Hospitalization)
  Sender: ALEXION PHARMACEUTICALS
  Company Number: RU-ASTRAZENECA-202507EAF006044RU

PATIENT
  Age: 36 Year
  Sex: Male

DRUGS (9)
  1. ROSUVASTATIN [Suspect]
     Active Substance: ROSUVASTATIN
     Route: 065
  2. DAPAGLIFLOZIN [Suspect]
     Active Substance: DAPAGLIFLOZIN
     Route: 065
  3. SPIRONOLACTONE [Suspect]
     Active Substance: SPIRONOLACTONE
     Route: 065
  4. PERINDOPRIL [Suspect]
     Active Substance: PERINDOPRIL
     Route: 065
  5. BISOPROLOL [Suspect]
     Active Substance: BISOPROLOL
     Route: 065
  6. WARFARIN [Suspect]
     Active Substance: WARFARIN
     Route: 065
  7. ASPIRIN [Suspect]
     Active Substance: ASPIRIN
     Route: 065
  8. ESCITALOPRAM [Suspect]
     Active Substance: ESCITALOPRAM OXALATE
     Route: 065
  9. PERPHENAZINE [Suspect]
     Active Substance: PERPHENAZINE
     Route: 065

REACTIONS (3)
  - Urticaria [Unknown]
  - Ventricular extrasystoles [Unknown]
  - Off label use [Unknown]
